FAERS Safety Report 6210260-2 (Version None)
Quarter: 2009Q2

REPORT INFORMATION
  Report Type: 
  Country: None (occurrence: None)
  Receive Date: 20090601
  Receipt Date: 20090527
  Transmission Date: 20091009
  Serious: Yes (Other)
  Sender: FDA-Public Use
  Company Number: BR-BRISTOL-MYERS SQUIBB COMPANY-14581615

PATIENT
  Age: 20 Year
  Sex: Male
  Weight: 55 kg

DRUGS (4)
  1. BECENUN PWDR FOR INJ 100 MG [Suspect]
     Dates: start: 20090325, end: 20090325
  2. FLUCONAZOLE [Concomitant]
  3. ALBENDAZOLE [Concomitant]
  4. OMEPRAZOLE [Concomitant]

REACTIONS (1)
  - CONVULSION [None]
